FAERS Safety Report 15043657 (Version 2)
Quarter: 2018Q3

REPORT INFORMATION
  Report Type: Spontaneous
  Country: US (occurrence: US)
  Receive Date: 20180621
  Receipt Date: 20180711
  Transmission Date: 20181010
  Serious: Yes (Hospitalization, Other)
  Sender: FDA-Public Use
  Company Number: US-NOVOPROD-606326

PATIENT
  Age: 86 Year
  Sex: Female

DRUGS (1)
  1. LEVEMIR [Suspect]
     Active Substance: INSULIN DETEMIR
     Indication: DIABETES MELLITUS
     Dosage: UNK, BID
     Route: 058
     Dates: start: 20000601

REACTIONS (9)
  - Spinal column injury [Recovered/Resolved]
  - Abnormal behaviour [Unknown]
  - Joint injury [Recovered/Resolved]
  - Pharyngitis [Recovering/Resolving]
  - Throat tightness [Recovered/Resolved]
  - Disorientation [Not Recovered/Not Resolved]
  - Injection site pain [Not Recovered/Not Resolved]
  - Fall [Recovered/Resolved]
  - Tremor [Not Recovered/Not Resolved]

NARRATIVE: CASE EVENT DATE: 20180301
